FAERS Safety Report 10477230 (Version 2)
Quarter: 2014Q4

REPORT INFORMATION
  Report Type: Spontaneous
  Country: IT (occurrence: IT)
  Receive Date: 20140926
  Receipt Date: 20141230
  Transmission Date: 20150528
  Serious: Yes (Hospitalization, Other)
  Sender: FDA-Public Use
  Company Number: IT-BRISTOL-MYERS SQUIBB COMPANY-21414032

PATIENT
  Age: 80 Year
  Sex: Female

DRUGS (19)
  1. MONOCINQUE [Concomitant]
     Active Substance: ISOSORBIDE MONONITRATE
  2. PANTORC [Concomitant]
     Active Substance: PANTOPRAZOLE SODIUM
  3. ARANESP [Concomitant]
     Active Substance: DARBEPOETIN ALFA
  4. SEQUACOR [Concomitant]
     Active Substance: BISOPROLOL
  5. NORVASC [Concomitant]
     Active Substance: AMLODIPINE BESYLATE
  6. ESKIM [Concomitant]
     Active Substance: OMEGA-3 FATTY ACIDS
  7. ZYLORIC [Concomitant]
     Active Substance: ALLOPURINOL
  8. NOVONORM [Concomitant]
     Active Substance: REPAGLINIDE
  9. FOLIC ACID. [Concomitant]
     Active Substance: FOLIC ACID
  10. XALATAN [Concomitant]
     Active Substance: LATANOPROST
  11. RIVOTRIL [Concomitant]
     Active Substance: CLONAZEPAM
  12. RANEXA [Concomitant]
     Active Substance: RANOLAZINE
  13. CARDURA [Concomitant]
     Active Substance: DOXAZOSIN MESYLATE
  14. CARDIOASPIRIN [Suspect]
     Active Substance: ASPIRIN
     Indication: PRODUCT USED FOR UNKNOWN INDICATION
     Dosage: ^100 MG TABLETS
     Route: 048
  15. ATORVASTATIN [Concomitant]
     Active Substance: ATORVASTATIN
  16. AMIODAR [Concomitant]
     Active Substance: AMIODARONE
  17. LASIX [Concomitant]
     Active Substance: FUROSEMIDE
  18. ZOLOFT [Concomitant]
     Active Substance: SERTRALINE HYDROCHLORIDE
  19. COUMADIN [Suspect]
     Active Substance: WARFARIN SODIUM
     Indication: PULMONARY EMBOLISM
     Dosage: INTERRUPTD: 30APR14
     Route: 048
     Dates: start: 20130211

REACTIONS (3)
  - Subarachnoid haemorrhage [Not Recovered/Not Resolved]
  - Fall [Not Recovered/Not Resolved]
  - Blindness unilateral [Unknown]

NARRATIVE: CASE EVENT DATE: 20140501
